FAERS Safety Report 14191705 (Version 1)
Quarter: 2017Q4

REPORT INFORMATION
  Report Type: Spontaneous
  Country: US (occurrence: US)
  Receive Date: 20171115
  Receipt Date: 20171115
  Transmission Date: 20180321
  Serious: Yes (Other)
  Sender: FDA-Public Use
  Company Number: US-ENDO PHARMACEUTICALS INC-2017-006064

PATIENT
  Age: 52 Year
  Sex: Male

DRUGS (2)
  1. XIAFLEX [Suspect]
     Active Substance: COLLAGENASE CLOSTRIDIUM HISTOLYTICUM
     Indication: PEYRONIE^S DISEASE
     Dosage: UNK, SECOND CYCLE, UNKNOWN
     Route: 026
  2. XIAFLEX [Suspect]
     Active Substance: COLLAGENASE CLOSTRIDIUM HISTOLYTICUM
     Dosage: UNK, FIRST CYCLE, UNKNOWN
     Route: 026

REACTIONS (5)
  - Erectile dysfunction [Recovered/Resolved]
  - Penile oedema [Recovered/Resolved]
  - Penis disorder [Recovered/Resolved]
  - Penile haematoma [Recovered/Resolved]
  - Penile haemorrhage [Recovered/Resolved]
